FAERS Safety Report 21521652 (Version 1)
Quarter: 2022Q4

REPORT INFORMATION
  Report Type: Report from Study
  Country: IT (occurrence: IT)
  Receive Date: 20221028
  Receipt Date: 20221028
  Transmission Date: 20230113
  Serious: Yes (Other)
  Sender: FDA-Public Use
  Company Number: None

PATIENT
  Age: 77 Year
  Sex: Female
  Weight: 68 kg

DRUGS (4)
  1. BEVACIZUMAB [Suspect]
     Active Substance: BEVACIZUMAB
     Indication: Colon cancer
     Dosage: 500 MG, IN PHYSIOLOGICAL 100 ML INTRAVENOUS IN 30^.
     Route: 042
     Dates: start: 20220512
  2. RAMIPRIL [Concomitant]
     Active Substance: RAMIPRIL
     Dosage: 5 MG, DAILY
     Route: 048
  3. CHLORTHALIDONE [Concomitant]
     Active Substance: CHLORTHALIDONE
     Dosage: 25 MG, DAILY, (HALF A TABLET IN THE MORNING AND HALF IN THE EVENING).
     Route: 048
  4. CAPECITABINE [Concomitant]
     Active Substance: CAPECITABINE
     Dosage: 500 MG, CYCLIC
     Route: 048

REACTIONS (3)
  - Paraesthesia [Unknown]
  - Palmar-plantar erythrodysaesthesia syndrome [Unknown]
  - Nail disorder [Unknown]

NARRATIVE: CASE EVENT DATE: 20220923
